FAERS Safety Report 7259355-5 (Version None)
Quarter: 2011Q1

REPORT INFORMATION
  Report Type: 
  Country: None (occurrence: None)
  Receive Date: 20110129
  Receipt Date: 20100824
  Transmission Date: 20110831
  Serious: No
  Sender: FDA-Public Use
  Company Number: US-ABBOTT-10P-163-0665937-00

PATIENT
  Age: 36 Year
  Sex: Male

DRUGS (5)
  1. CLOBEX [Concomitant]
     Indication: PRODUCT USED FOR UNKNOWN INDICATION
     Route: 061
  2. HUMIRA [Suspect]
     Indication: PSORIASIS
     Dosage: 2 PENS
     Dates: start: 20100726, end: 20100726
  3. HUMIRA [Suspect]
     Dosage: 2 PENS
     Dates: start: 20100727, end: 20100727
  4. HUMIRA [Suspect]
  5. HUMIRA [Suspect]
     Dosage: 2 PENS
     Dates: start: 20100811, end: 20100811

REACTIONS (1)
  - INCORRECT DOSE ADMINISTERED [None]
